FAERS Safety Report 24104317 (Version 1)
Quarter: 2024Q3

REPORT INFORMATION
  Report Type: Spontaneous
  Country: GB (occurrence: GB)
  Receive Date: 20240717
  Receipt Date: 20240717
  Transmission Date: 20241016
  Serious: Yes (Other)
  Sender: TORRENT
  Company Number: None

PATIENT
  Age: 10 Year
  Sex: Male
  Weight: 28 kg

DRUGS (5)
  1. MONTELUKAST [Suspect]
     Active Substance: MONTELUKAST SODIUM
     Indication: Ill-defined disorder
     Dosage: TAKE ONE TABLET AT NIGHT, SUGAR FREE
     Route: 065
     Dates: start: 20240429, end: 20240527
  2. Aerochamber Plus [Concomitant]
     Indication: Ill-defined disorder
     Dosage: USE AS DIRECTED BY PRESCRIBER OR NURSE, TPP YC - PLEASE RECLASSIFY
     Route: 065
     Dates: start: 20240702
  3. BECLOMETHASONE DIPROPIONATE [Concomitant]
     Active Substance: BECLOMETHASONE DIPROPIONATE
     Indication: Ill-defined disorder
     Dosage: (BECLOMETASONE) INHALE ONE DOSE REGULARLY TWICE...
     Route: 055
     Dates: start: 20230612, end: 20240702
  4. ALBUTEROL [Concomitant]
     Active Substance: ALBUTEROL
     Indication: Ill-defined disorder
     Dosage: (SALBUTAMOL 100MCG/DOSE CFC FREE LOW CARBON INH, TPP YC - PLEASE RECLASSIFY
     Route: 065
     Dates: start: 20230612
  5. SOPROBEC [Concomitant]
     Indication: Ill-defined disorder
     Dosage: (BECLOMETASONE-CLENIL EQUIVALENT) INHALE ONE DO. TPP YC - PLEASE RECLASSIFY
     Route: 055
     Dates: start: 20240702

REACTIONS (2)
  - Insomnia [Recovered/Resolved]
  - Personality change [Recovered/Resolved]

NARRATIVE: CASE EVENT DATE: 20240702
